FAERS Safety Report 21850513 (Version 1)
Quarter: 2023Q1

REPORT INFORMATION
  Report Type: Spontaneous
  Country: US (occurrence: US)
  Receive Date: 20230111
  Receipt Date: 20230111
  Transmission Date: 20230417
  Serious: No
  Sender: FDA-Public Use
  Company Number: US-MYLANLABS-2022M1137689

PATIENT
  Age: 39 Year

DRUGS (4)
  1. GABAPENTIN [Suspect]
     Active Substance: GABAPENTIN
     Indication: Arthritis
     Dosage: UNK
     Route: 048
     Dates: start: 20201205
  2. TIZANIDINE [Concomitant]
     Active Substance: TIZANIDINE
     Indication: Arthritis
     Dosage: UNK
     Route: 048
     Dates: start: 20201205
  3. METHAMPHETAMINE HYDROCHLORIDE [Concomitant]
     Active Substance: METHAMPHETAMINE HYDROCHLORIDE
     Indication: Product used for unknown indication
     Dosage: UNK
     Route: 042
     Dates: start: 202110, end: 20220506
  4. PRILOSEC [Concomitant]
     Active Substance: OMEPRAZOLE MAGNESIUM
     Indication: Gastrooesophageal reflux disease
     Dosage: UNK
     Route: 048

REACTIONS (10)
  - Epistaxis [Unknown]
  - Ear pain [Unknown]
  - Gingival bleeding [Unknown]
  - Contusion [Unknown]
  - Head discomfort [Unknown]
  - Hypoacusis [Unknown]
  - Pain in jaw [Unknown]
  - Swelling [Unknown]
  - Confusional state [Unknown]
  - Off label use [Unknown]
